FAERS Safety Report 25802366 (Version 1)
Quarter: 2025Q3

REPORT INFORMATION
  Report Type: Spontaneous
  Country: EU (occurrence: EU)
  Receive Date: 20250915
  Receipt Date: 20250915
  Transmission Date: 20251020
  Serious: Yes (Other)
  Sender: INSUD PHARMA
  Company Number: None

PATIENT
  Age: 36 Year
  Sex: Female
  Weight: 55 kg

DRUGS (1)
  1. DROSPIRENONE [Suspect]
     Active Substance: DROSPIRENONE
     Indication: Oral contraception
     Dosage: 4 MILLIGRAM, QD

REACTIONS (1)
  - Affective disorder [Recovering/Resolving]
